FAERS Safety Report 6177733-2 (Version None)
Quarter: 2009Q2

REPORT INFORMATION
  Report Type: 
  Country: None (occurrence: None)
  Receive Date: 20090504
  Receipt Date: 20081229
  Transmission Date: 20091009
  Serious: No
  Sender: FDA-Public Use
  Company Number: US-ALEXION-A200800444

PATIENT
  Sex: Female
  Weight: 70.748 kg

DRUGS (8)
  1. SOLIRIS [Suspect]
     Dosage: UNK
     Route: 042
  2. ASPIRIN [Concomitant]
     Dosage: UNK
     Route: 048
  3. MULTI-VITAMINS [Concomitant]
     Dosage: UNK
     Route: 048
  4. CALCIUM D                          /01272001/ [Concomitant]
     Dosage: UNK
     Route: 048
  5. LEVOTHROID [Concomitant]
     Dosage: 75 UG, QD
  6. FOLIC ACID [Concomitant]
     Dosage: 1 MG, BID
     Route: 048
  7. ALENDRONATE SODIUM [Concomitant]
     Dosage: 70 MG, UNK
     Route: 048
  8. LISINOPRIL [Concomitant]
     Dosage: 5 MG, QD
     Route: 048

REACTIONS (4)
  - CONTUSION [None]
  - EPISTAXIS [None]
  - FALL [None]
  - NASAL DRYNESS [None]
